FAERS Safety Report 9592256 (Version 2)
Quarter: 2013Q4

REPORT INFORMATION
  Report Type: Spontaneous
  Country: JP (occurrence: JP)
  Receive Date: 20131004
  Receipt Date: 20131018
  Transmission Date: 20140711
  Serious: Yes (Hospitalization, Other)
  Sender: FDA-Public Use
  Company Number: JP-BRISTOL-MYERS SQUIBB COMPANY-19481472

PATIENT
  Age: 6 Decade
  Sex: Male

DRUGS (6)
  1. ELIQUIS [Suspect]
     Indication: THROMBOSIS PROPHYLAXIS
     Route: 048
     Dates: start: 20130919, end: 20130921
  2. PLETAAL [Suspect]
     Indication: THROMBOSIS PROPHYLAXIS
     Route: 048
     Dates: start: 20130919, end: 20130921
  3. GASMOTIN [Concomitant]
     Route: 048
  4. LIVALO [Concomitant]
     Route: 048
  5. NEXIUM [Concomitant]
     Route: 048
  6. PLETAAL [Concomitant]
     Dates: start: 20130919

REACTIONS (1)
  - Puncture site haemorrhage [Recovered/Resolved]
